FAERS Safety Report 13399836 (Version 1)
Quarter: 2017Q2

REPORT INFORMATION
  Report Type: Spontaneous
  Country: US (occurrence: US)
  Receive Date: 20170404
  Receipt Date: 20170404
  Transmission Date: 20170830
  Serious: No
  Sender: FDA-Public Use
  Company Number: None

PATIENT

DRUGS (2)
  1. EFFEXOR XR [Suspect]
     Active Substance: VENLAFAXINE HYDROCHLORIDE
  2. VENLAFAXINE HCL 37.5MG [Suspect]
     Active Substance: VENLAFAXINE HYDROCHLORIDE

REACTIONS (2)
  - Product selection error [None]
  - Drug dispensing error [None]
